FAERS Safety Report 6085419-8 (Version None)
Quarter: 2009Q1

REPORT INFORMATION
  Report Type: 
  Country: None (occurrence: None)
  Receive Date: 20090217
  Receipt Date: 20090207
  Transmission Date: 20090719
  Serious: Yes (Other)
  Sender: FDA-Public Use
  Company Number: CHNY2008JP04211

PATIENT
  Age: 63 Year
  Sex: Male
  Weight: 61 kg

DRUGS (1)
  1. NICOTINE [Suspect]
     Indication: SMOKING CESSATION THERAPY
     Dosage: 14 MG, QD, TRANSDERMAL
     Route: 062
     Dates: start: 20081025, end: 20081113

REACTIONS (3)
  - DERMATITIS CONTACT [None]
  - PIGMENTATION DISORDER [None]
  - SKIN ULCER [None]
